FAERS Safety Report 5849606-3 (Version None)
Quarter: 2008Q3

REPORT INFORMATION
  Report Type: 
  Country: None (occurrence: None)
  Receive Date: 20080815
  Receipt Date: 20080804
  Transmission Date: 20090109
  Serious: Yes (Other)
  Sender: FDA-Public Use
  Company Number: 1-16503501/MED-08154

PATIENT
  Age: 67 Year
  Sex: Female

DRUGS (1)
  1. METRONIDAZOLE TABLET 250 MG [Suspect]
     Indication: OVERGROWTH BACTERIAL
     Dosage: 400 MG THREE TIMES DAILY, ORAL
     Route: 048
     Dates: start: 20051101, end: 20060801

REACTIONS (8)
  - CALCINOSIS [None]
  - GAIT DISTURBANCE [None]
  - MUSCULAR WEAKNESS [None]
  - NUCLEAR MAGNETIC RESONANCE IMAGING BRAIN ABNORMAL [None]
  - OPTIC ATROPHY [None]
  - OPTIC NEUROPATHY [None]
  - PAIN [None]
  - PERIPHERAL SENSORY NEUROPATHY [None]
